FAERS Safety Report 6094103-6 (Version None)
Quarter: 2009Q1

REPORT INFORMATION
  Report Type: 
  Country: None (occurrence: None)
  Receive Date: 20090226
  Receipt Date: 20090222
  Transmission Date: 20090719
  Serious: Yes (Death)
  Sender: FDA-Public Use
  Company Number: NZ-CELGENEUS-118-20785-09020540

PATIENT
  Sex: Male

DRUGS (14)
  1. THALIDOMIDE [Suspect]
     Route: 048
     Dates: start: 20061026, end: 20061217
  2. THALIDOMIDE [Suspect]
     Route: 048
     Dates: start: 20080208, end: 20080220
  3. THALIDOMIDE [Suspect]
     Route: 048
     Dates: start: 20080221, end: 20080402
  4. CYCLOPHOSPHAMIDE [Suspect]
     Route: 051
     Dates: start: 20080202, end: 20080403
  5. DEXAMETHASONE [Concomitant]
     Route: 048
     Dates: start: 20060702, end: 20080403
  6. ASPIRIN [Concomitant]
     Indication: THROMBOSIS PROPHYLAXIS
     Route: 065
     Dates: start: 20080202, end: 20080209
  7. OMEPRAZOLE [Concomitant]
     Indication: PROPHYLAXIS
     Route: 065
     Dates: start: 20080202
  8. PAMIDRONATE DISODIUM [Concomitant]
     Indication: DRUG USE FOR UNKNOWN INDICATION
     Route: 051
     Dates: end: 20080306
  9. CLOTRIMAZOLE [Concomitant]
     Route: 065
     Dates: start: 20080219, end: 20080226
  10. CLOTRIMAZOLE [Concomitant]
     Route: 065
     Dates: start: 20080227
  11. ENOXAPARIN SODIUM [Concomitant]
     Indication: DRUG USE FOR UNKNOWN INDICATION
     Route: 058
  12. DIPHENHYDRAMINE HCL [Concomitant]
     Indication: DRUG USE FOR UNKNOWN INDICATION
     Route: 065
     Dates: start: 20080306
  13. FUROSEMIDE [Concomitant]
     Indication: DRUG USE FOR UNKNOWN INDICATION
     Dosage: 20-30 MG
     Route: 065
     Dates: start: 20080320
  14. PARACETAMOL [Concomitant]
     Indication: DRUG USE FOR UNKNOWN INDICATION
     Route: 065
     Dates: start: 20080403

REACTIONS (1)
  - LUNG ADENOCARCINOMA [None]
